FAERS Safety Report 5750365-3 (Version None)
Quarter: 2008Q2

REPORT INFORMATION
  Report Type: 
  Country: None (occurrence: None)
  Receive Date: 20080523
  Receipt Date: 20080523
  Transmission Date: 20081010
  Serious: Yes (Death, Life-Threatening, Hospitalization)
  Sender: FDA-Public Use
  Company Number: None

PATIENT
  Age: 77 Year
  Sex: Female
  Weight: 67 kg

DRUGS (14)
  1. AMPICILLIN [Suspect]
     Indication: PROPHYLAXIS
     Dosage: 1 GRAM ONCE IV DRIP
     Route: 041
     Dates: start: 20080429, end: 20080429
  2. SIMVASTATIN [Concomitant]
  3. MULTI-VITAMIN [Concomitant]
  4. SPIRIVA [Concomitant]
  5. COREG [Concomitant]
  6. IRON SULFATETHIAMIN COMPOUND TAB [Concomitant]
  7. TRAZODONE HCL [Concomitant]
  8. POTASSIUM CHLORIDE [Concomitant]
  9. DETROL LA [Concomitant]
  10. COUMADIN [Concomitant]
  11. PROZAC [Concomitant]
  12. LISINOPRIL [Concomitant]
  13. LASIX [Concomitant]
  14. ALBUTEROL [Concomitant]

REACTIONS (8)
  - ANOXIC ENCEPHALOPATHY [None]
  - CARDIO-RESPIRATORY ARREST [None]
  - CYANOSIS [None]
  - DYSPNOEA [None]
  - ELECTROMECHANICAL DISSOCIATION [None]
  - INFUSION RELATED REACTION [None]
  - SKIN BURNING SENSATION [None]
  - UNRESPONSIVE TO STIMULI [None]
